APPROVED DRUG PRODUCT: EPIRUBICIN HYDROCHLORIDE
Active Ingredient: EPIRUBICIN HYDROCHLORIDE
Strength: 50MG/25ML (2MG/ML)
Dosage Form/Route: INJECTABLE;INJECTION
Application: A065339 | Product #001
Applicant: EBEWE PHARMA GES MBH NFG KG
Approved: Dec 22, 2009 | RLD: No | RS: No | Type: DISCN